FAERS Safety Report 17280722 (Version 1)
Quarter: 2020Q1

REPORT INFORMATION
  Report Type: Spontaneous
  Country: CO (occurrence: CO)
  Receive Date: 20200117
  Receipt Date: 20200117
  Transmission Date: 20200409
  Serious: Yes (Hospitalization, Other)
  Sender: FDA-Public Use
  Company Number: CO-HRARD-202000014

PATIENT
  Age: 30 Year
  Sex: Male

DRUGS (2)
  1. LYSODREN [Suspect]
     Active Substance: MITOTANE
     Indication: CUSHING^S SYNDROME
     Dosage: TREATMENT INITIATED AT AN UNSPECIFIED DAILY DOSE
     Route: 048
  2. LYSODREN [Suspect]
     Active Substance: MITOTANE
     Indication: CUSHING^S SYNDROME
     Dosage: AT TIME OF ADVERSE EVENT ONSET
     Route: 048

REACTIONS (1)
  - Hypokalaemia [Not Recovered/Not Resolved]

NARRATIVE: CASE EVENT DATE: 20200103
